FAERS Safety Report 5693501-X (Version None)
Quarter: 2008Q2

REPORT INFORMATION
  Report Type: 
  Country: None (occurrence: None)
  Receive Date: 20080403
  Receipt Date: 20080327
  Transmission Date: 20081010
  Serious: Yes (Congenital Anomaly)
  Sender: FDA-Public Use
  Company Number: A0719186A

PATIENT

DRUGS (2)
  1. EPZICOM [Suspect]
     Indication: HIV INFECTION
     Dates: start: 20071203
  2. REYATAZ [Suspect]
     Indication: HIV INFECTION

REACTIONS (1)
  - VENTRICULAR SEPTAL DEFECT [None]
